FAERS Safety Report 9098722 (Version 2)
Quarter: 2013Q1

REPORT INFORMATION
  Report Type: Spontaneous
  Country: US (occurrence: US)
  Receive Date: 20130213
  Receipt Date: 20130225
  Transmission Date: 20140127
  Serious: No
  Sender: FDA-Public Use
  Company Number: US-FRI-1000042498

PATIENT
  Age: 52 Year
  Sex: Female
  Weight: 92 kg

DRUGS (13)
  1. VIIBRYD [Suspect]
     Indication: DEPRESSION
     Dosage: 2.5 MG
     Route: 048
     Dates: start: 201209, end: 201209
  2. VIIBRYD [Suspect]
     Dosage: 10 MG
     Dates: start: 201209, end: 20120923
  3. VIIBRYD [Suspect]
     Dosage: 15 MG
     Dates: start: 20120924, end: 20121114
  4. VIIBRYD [Suspect]
     Indication: DEPRESSION
     Dosage: 20 MG
     Route: 048
     Dates: start: 20121115, end: 20121203
  5. VIIBRYD [Suspect]
     Dosage: 10 MG
     Route: 048
     Dates: start: 20121204
  6. CRESTOR [Suspect]
     Dosage: 10 MG
     Dates: end: 20130206
  7. ATELVIA [Concomitant]
     Dates: start: 201301
  8. VITAMIN D [Concomitant]
  9. DEXILANT [Concomitant]
  10. XANAX [Concomitant]
     Dosage: 0.25 MG QD PRN
  11. SUPPLEMENTS NOS [Concomitant]
  12. PEPCID [Concomitant]
  13. DALMANE [Concomitant]
     Dosage: 15 MG QHS PRN

REACTIONS (4)
  - Weight decreased [Unknown]
  - Irritable bowel syndrome [Not Recovered/Not Resolved]
  - Abdominal pain [Recovered/Resolved]
  - Asthenia [Unknown]
